FAERS Safety Report 23204600 (Version 1)
Quarter: 2023Q4

REPORT INFORMATION
  Report Type: Spontaneous
  Country: US (occurrence: US)
  Receive Date: 20231120
  Receipt Date: 20231120
  Transmission Date: 20240110
  Serious: No
  Sender: FDA-Public Use
  Company Number: US-TEVA-2023-US-2944934

PATIENT
  Age: 67 Year
  Sex: Female

DRUGS (3)
  1. COPAXONE [Suspect]
     Active Substance: GLATIRAMER ACETATE
     Indication: Multiple sclerosis
     Route: 065
  2. COPAXONE [Suspect]
     Active Substance: GLATIRAMER ACETATE
     Route: 065
  3. GLATIRAMER ACETATE [Suspect]
     Active Substance: GLATIRAMER ACETATE
     Indication: Product used for unknown indication
     Route: 065

REACTIONS (5)
  - Visual impairment [Unknown]
  - Muscular weakness [Unknown]
  - Urticaria [Unknown]
  - Chest pain [Unknown]
  - Insurance issue [Unknown]
